FAERS Safety Report 11567601 (Version 1)
Quarter: 2015Q3

REPORT INFORMATION
  Report Type: Spontaneous
  Country: DK (occurrence: DK)
  Receive Date: 20150929
  Receipt Date: 20150929
  Transmission Date: 20151125
  Serious: Yes (Hospitalization)
  Sender: FDA-Public Use
  Company Number: DK-ROCHE-1469101

PATIENT
  Age: 70 Year
  Sex: Female

DRUGS (2)
  1. BONDRONAT [Suspect]
     Active Substance: IBANDRONIC ACID
     Indication: METASTASES TO BONE
     Route: 048
     Dates: start: 20130701, end: 20140429
  2. ZOMETA [Suspect]
     Active Substance: ZOLEDRONIC ACID
     Indication: METASTASES TO BONE
     Dosage: STRENGTH: 4 MG, ZOMETA DOSE: 4 MG EVERY 3 WEEK.
     Route: 042
     Dates: start: 20121001

REACTIONS (4)
  - Jaw lesion excision [Unknown]
  - Osteonecrosis of jaw [Recovering/Resolving]
  - Oral cavity fistula [Unknown]
  - Exposed bone in jaw [Unknown]

NARRATIVE: CASE EVENT DATE: 2014
